FAERS Safety Report 6379182-0 (Version None)
Quarter: 2009Q3

REPORT INFORMATION
  Report Type: 
  Country: None (occurrence: None)
  Receive Date: 20090923
  Receipt Date: 20090923
  Transmission Date: 20100115
  Serious: Yes (Other)
  Sender: FDA-Public Use
  Company Number: None

PATIENT
  Sex: Female
  Weight: 53.5244 kg

DRUGS (1)
  1. YAZ [Suspect]
     Indication: CONTRACEPTION
     Dosage: 3 MG/0.02 MG 1 A DAY, Q8 DAYS PO
     Route: 048
     Dates: start: 20090719, end: 20090922

REACTIONS (7)
  - ASTHENIA [None]
  - CRYING [None]
  - DECREASED INTEREST [None]
  - DEPRESSION [None]
  - EMOTIONAL DISORDER [None]
  - FATIGUE [None]
  - SUICIDAL IDEATION [None]
